FAERS Safety Report 5015217-5 (Version None)
Quarter: 2006Q2

REPORT INFORMATION
  Report Type: 
  Country: None (occurrence: None)
  Receive Date: 20060426
  Receipt Date: 20060313
  Transmission Date: 20061013
  Serious: No
  Sender: FDA-Public Use
  Company Number: 223012

PATIENT

DRUGS (1)
  1. XOLAIR [Suspect]

REACTIONS (1)
  - PAIN IN EXTREMITY [None]
